FAERS Safety Report 6920100-1 (Version None)
Quarter: 2010Q3

REPORT INFORMATION
  Report Type: 
  Country: None (occurrence: None)
  Receive Date: 20100730
  Receipt Date: 20100126
  Transmission Date: 20110219
  Serious: Yes (Hospitalization)
  Sender: FDA-Public Use
  Company Number: OMPQ-PR-1001S-0043

PATIENT
  Age: 57 Year
  Sex: Male

DRUGS (15)
  1. OMNIPAQUE 140 [Suspect]
     Indication: PANCREATIC CARCINOMA METASTATIC
     Dosage: 120 ML, SINGLE DOSE, I.V.
     Route: 042
     Dates: start: 20090803, end: 20090803
  2. POTASSIUM CHLORIDE (K-DUR) [Concomitant]
  3. FUROSEMIDE [Concomitant]
  4. AMG 655 [Concomitant]
  5. GEMCITABINE [Concomitant]
  6. SPIRONOLACTONE [Concomitant]
  7. PANCREATIN [Concomitant]
  8. SENNA CONCENTRATE [Concomitant]
  9. ATIVAN [Concomitant]
  10. PROCHLORPERAZINE EDISYLATE [Concomitant]
  11. ASPIRIN [Concomitant]
  12. OXYCODONE HCL [Concomitant]
  13. HYDROCODONE [Concomitant]
  14. LISINOPRIL [Concomitant]
  15. MIRALAX [Concomitant]

REACTIONS (8)
  - CONSTIPATION [None]
  - DIZZINESS [None]
  - FATIGUE [None]
  - HYPERKALAEMIA [None]
  - HYPOTENSION [None]
  - RENAL FAILURE ACUTE [None]
  - URINE OUTPUT DECREASED [None]
  - VOMITING [None]
